FAERS Safety Report 18600008 (Version 1)
Quarter: 2020Q4

REPORT INFORMATION
  Report Type: Spontaneous
  Country: GB (occurrence: GB)
  Receive Date: 20201210
  Receipt Date: 20201210
  Transmission Date: 20210114
  Serious: Yes (Other)
  Sender: FDA-Public Use
  Company Number: NVSC2020GB322067

PATIENT

DRUGS (2)
  1. ACYCLOVIR. [Suspect]
     Active Substance: ACYCLOVIR
     Indication: PROPHYLAXIS
     Dosage: UNK
     Route: 065
  2. TISAGENLECLEUCEL. [Suspect]
     Active Substance: TISAGENLECLEUCEL
     Indication: LYMPHOMA
     Dosage: UNK
     Route: 041

REACTIONS (7)
  - Progressive multifocal leukoencephalopathy [Unknown]
  - B-cell aplasia [Unknown]
  - Toxicity to various agents [Unknown]
  - Lymphoma [Unknown]
  - Malignant neoplasm progression [Unknown]
  - Infection [Unknown]
  - Cytopenia [Unknown]
